FAERS Safety Report 8767010 (Version 2)
Quarter: 2012Q4

REPORT INFORMATION
  Report Type: 
  Country: TH (occurrence: TH)
  Receive Date: 20120904
  Receipt Date: 20120919
  Transmission Date: 20130627
  Serious: Yes (Hospitalization)
  Sender: FDA-Public Use
  Company Number: TH-PFIZER INC-2012213309

PATIENT
  Age: 45 Year
  Sex: Female

DRUGS (3)
  1. LYRICA [Suspect]
     Indication: NEUROPATHY PERIPHERAL
     Dosage: 25 mg, single
     Route: 048
     Dates: start: 20120826, end: 20120826
  2. DIAMICRON MR [Concomitant]
     Indication: DIABETES MELLITUS
     Dosage: 1 tablet, once daily
     Route: 048
  3. GLUCOPHAGE [Concomitant]
     Indication: DIABETES MELLITUS
     Dosage: 850 mg, 1x/day
     Route: 048

REACTIONS (1)
  - Toxic epidermal necrolysis [Recovering/Resolving]
